FAERS Safety Report 12743638 (Version 1)
Quarter: 2016Q3

REPORT INFORMATION
  Report Type: Spontaneous
  Country: US (occurrence: US)
  Receive Date: 20160914
  Receipt Date: 20160914
  Transmission Date: 20161109
  Serious: Yes (Other)
  Sender: FDA-Public Use
  Company Number: US-SUNOVION-2016SUN002234

PATIENT
  Age: 0 Day
  Weight: 2.81 kg

DRUGS (2)
  1. LATUDA [Suspect]
     Active Substance: LURASIDONE HYDROCHLORIDE
     Dosage: 20 MG, QD
     Route: 064
  2. LATUDA [Suspect]
     Active Substance: LURASIDONE HYDROCHLORIDE
     Dosage: UNK
     Route: 063

REACTIONS (4)
  - Foetal hypokinesia [Unknown]
  - Premature baby [Unknown]
  - Exposure during breast feeding [Unknown]
  - Jaundice neonatal [Unknown]

NARRATIVE: CASE EVENT DATE: 20160623
